FAERS Safety Report 6302887-4 (Version None)
Quarter: 2009Q3

REPORT INFORMATION
  Report Type: 
  Country: None (occurrence: None)
  Receive Date: 20090810
  Receipt Date: 20090804
  Transmission Date: 20100115
  Serious: Yes (Other)
  Sender: FDA-Public Use
  Company Number: US-AVENTIS-200916905US

PATIENT
  Sex: Male

DRUGS (3)
  1. LANTUS [Suspect]
     Route: 058
  2. OPTICLIK (INSULIN INJECTION PEN) [Suspect]
     Dosage: DOSE: UNK
  3. ^MANY MEDICATIONS^ [Concomitant]
     Dosage: DOSE: UNK

REACTIONS (1)
  - CARDIAC OPERATION [None]
